FAERS Safety Report 21087399 (Version 1)
Quarter: 2022Q3

REPORT INFORMATION
  Report Type: Spontaneous
  Country: US (occurrence: None)
  Receive Date: 20220714
  Receipt Date: 20220714
  Transmission Date: 20221027
  Serious: Yes (Hospitalization)
  Sender: FDA-Public Use
  Company Number: None

PATIENT
  Sex: Female

DRUGS (1)
  1. IBRANCE [Suspect]
     Active Substance: PALBOCICLIB
     Indication: Breast cancer
     Dosage: OTHER FREQUENCY : DAYS 1-21 OF 28 D ;?TAKE 1 TABLET BY MOUTH 1 TIME A DAY ON DAYS 1 TO 21 OF A 28 DA
     Route: 048
     Dates: start: 20220627

REACTIONS (2)
  - Dizziness [None]
  - Refusal of treatment by patient [None]
